FAERS Safety Report 8383409-3 (Version None)
Quarter: 2012Q2

REPORT INFORMATION
  Report Type: 
  Country: None (occurrence: None)
  Receive Date: 20120524
  Receipt Date: 20120517
  Transmission Date: 20120825
  Serious: Yes (Congenital Anomaly, Other)
  Sender: FDA-Public Use
  Company Number: US-PFIZER INC-2011270383

PATIENT
  Sex: Female

DRUGS (22)
  1. VICKS COUGH DROPS [Concomitant]
     Indication: COUGH
     Dosage: UNK
     Route: 064
  2. ZOLOFT [Suspect]
     Dosage: 50 MG, 1X/DAY AT BED TIME
     Route: 064
     Dates: start: 20050531, end: 20050615
  3. XANAX [Concomitant]
     Indication: DEPRESSION
  4. ZITHROMAX [Concomitant]
     Indication: COUGH
     Dosage: 500 MG, 1X/DAY
     Route: 064
     Dates: start: 20081222, end: 20081222
  5. CEFTIN [Concomitant]
     Indication: ACUTE SINUSITIS
     Dosage: 500 MG, 2X/DAY
     Route: 064
     Dates: start: 20090302, end: 20090323
  6. PHENERGAN EXPECTORANT W/ CODEINE [Concomitant]
     Indication: COUGH
     Dosage: 5 ML, 4X/DAY (EVERY 6 HOURS AS NEEDED)
     Route: 064
     Dates: start: 20090309
  7. ZOLOFT [Suspect]
     Indication: DEPRESSION
     Dosage: 50 MG, 1X/DAY
     Route: 064
     Dates: start: 20050510, end: 20050522
  8. ZOLOFT [Suspect]
     Dosage: 100 MG, DAILY
     Route: 064
     Dates: start: 20050616
  9. ZOLOFT [Suspect]
     Dosage: 50 MG, 1X/DAY EVERY MORNING
     Route: 064
     Dates: start: 20080814
  10. ZITHROMAX [Concomitant]
     Dosage: 250 MG, 1X/DAY
     Route: 064
     Dates: start: 20081223
  11. ZOLOFT [Suspect]
     Indication: FATIGUE
     Dosage: 50 MG, 1X/DAY, EVERY NIGHT
     Route: 064
     Dates: start: 19980224, end: 19980324
  12. ZOLOFT [Suspect]
     Dosage: 200 MG, 1X/DAY
     Route: 064
     Dates: start: 20060501
  13. XANAX [Concomitant]
     Indication: ANXIETY
     Dosage: 0.5 MG, DAILY AS NEEDED
     Route: 064
     Dates: start: 20070227
  14. PAXIL [Concomitant]
     Indication: DEPRESSION
  15. ZOLOFT [Suspect]
     Dosage: 150 MG, 1X/DAY (100MG TABLET, ONE AND HALF TABLET ONCE DAILY)
     Route: 064
     Dates: start: 20050711, end: 20060430
  16. PAXIL [Concomitant]
     Indication: ANXIETY
     Dosage: 40 MG, 1X/DAY
     Route: 064
     Dates: start: 20080814
  17. GUAIFENESIN [Concomitant]
     Indication: COUGH
     Dosage: UNK
     Route: 064
  18. GUAIFENESIN W/DEXTROMETHORPHAN [Concomitant]
     Indication: COUGH
     Dosage: UNK
     Route: 064
  19. RHINOCORT [Concomitant]
     Indication: ACUTE SINUSITIS
     Dosage: 64 UG, 1X/DAY, EACH NOSTRIL
     Route: 064
     Dates: start: 20090302
  20. ZOLOFT [Suspect]
     Indication: ANXIETY
     Dosage: 100 MG, 1X/DAY
     Route: 064
     Dates: start: 20050523, end: 20050530
  21. NORGESTIMATE AND ETHINYL ESTRADIOL [Concomitant]
     Dosage: UNK
     Route: 064
     Dates: start: 20080530, end: 20090323
  22. OMNICEF [Concomitant]
     Indication: COUGH
     Dosage: 300 MG, 2X/DAY
     Route: 064
     Dates: start: 20090323

REACTIONS (3)
  - MATERNAL EXPOSURE DURING PREGNANCY [None]
  - HEART DISEASE CONGENITAL [None]
  - FALLOT'S TETRALOGY [None]
